FAERS Safety Report 14819634 (Version 1)
Quarter: 2018Q2

REPORT INFORMATION
  Report Type: Spontaneous
  Country: US (occurrence: US)
  Receive Date: 20180427
  Receipt Date: 20180427
  Transmission Date: 20180711
  Serious: Yes (Other)
  Sender: FDA-Public Use
  Company Number: US-JNJFOC-20180410638

PATIENT
  Sex: Female
  Weight: 115.21 kg

DRUGS (5)
  1. INVEGA [Suspect]
     Active Substance: PALIPERIDONE
     Indication: BIPOLAR I DISORDER
     Route: 048
     Dates: start: 201705, end: 201802
  2. VRAYLAR [Concomitant]
     Active Substance: CARIPRAZINE
     Indication: BIPOLAR I DISORDER
     Route: 065
  3. INVEGA [Suspect]
     Active Substance: PALIPERIDONE
     Indication: BIPOLAR I DISORDER
     Route: 048
     Dates: start: 2013, end: 2015
  4. INVEGA [Suspect]
     Active Substance: PALIPERIDONE
     Indication: BIPOLAR I DISORDER
     Route: 048
     Dates: start: 2015, end: 201702
  5. INVEGA [Suspect]
     Active Substance: PALIPERIDONE
     Indication: BIPOLAR I DISORDER
     Route: 048
     Dates: start: 2013, end: 2013

REACTIONS (6)
  - Depression [Unknown]
  - Drug dose omission [Unknown]
  - Psychotic disorder [Unknown]
  - Therapy cessation [Unknown]
  - Type 2 diabetes mellitus [Unknown]
  - Mania [Unknown]

NARRATIVE: CASE EVENT DATE: 2014
